FAERS Safety Report 18589834 (Version 1)
Quarter: 2020Q4

REPORT INFORMATION
  Report Type: Spontaneous
  Country: US (occurrence: US)
  Receive Date: 20201207
  Receipt Date: 20201207
  Transmission Date: 20210114
  Serious: Yes (Hospitalization)
  Sender: FDA-Public Use
  Company Number: None

PATIENT
  Age: 71 Year
  Sex: Male
  Weight: 74.4 kg

DRUGS (3)
  1. BENZONATATE 100MG CAPSULES [Concomitant]
     Dates: start: 20201203
  2. BAMLANIVIMAB. [Suspect]
     Active Substance: BAMLANIVIMAB
     Indication: COVID-19
     Dosage: ?          OTHER FREQUENCY:ONCE;?
     Route: 041
     Dates: start: 20201204, end: 20201204
  3. METHYLPRENISOLONE 4MG DOSEPAK [Concomitant]
     Dates: start: 20201203

REACTIONS (3)
  - Melaena [None]
  - Haematochezia [None]
  - Intentional product use issue [None]

NARRATIVE: CASE EVENT DATE: 20201206
